FAERS Safety Report 6533318-7 (Version None)
Quarter: 2010Q1

REPORT INFORMATION
  Report Type: 
  Country: None (occurrence: None)
  Receive Date: 20100111
  Receipt Date: 20100108
  Transmission Date: 20100710
  Serious: Yes (Hospitalization, Congenital Anomaly)
  Sender: FDA-Public Use
  Company Number: A0681647A

PATIENT
  Sex: Female

DRUGS (2)
  1. PAXIL [Suspect]
     Indication: ANXIETY
     Dosage: 20MG PER DAY
     Dates: start: 20000601, end: 20000911
  2. VITAMIN TAB [Concomitant]

REACTIONS (4)
  - APNOEA [None]
  - CLEFT PALATE [None]
  - DRUG EXPOSURE DURING PREGNANCY [None]
  - PIERRE ROBIN SYNDROME [None]
